FAERS Safety Report 4953785-X (Version None)
Quarter: 2006Q1

REPORT INFORMATION
  Report Type: 
  Country: None (occurrence: None)
  Receive Date: 20060324
  Receipt Date: 20060324
  Transmission Date: 20060701
  Serious: Yes (Hospitalization)
  Sender: FDA-Public Use
  Company Number: None

PATIENT
  Age: 61 Year
  Sex: Male
  Weight: 67.586 kg

DRUGS (11)
  1. ATAZANAVIR (REYATAZ) [Suspect]
     Indication: HIV INFECTION
     Dosage: 300 MG QD PO (047)
     Route: 048
     Dates: start: 20040608
  2. RITONAVIR (NORVIR) [Suspect]
     Indication: HIV INFECTION
     Dosage: 100 MG QD PO (047)
     Route: 048
     Dates: start: 20040608
  3. INVIRASE [Suspect]
     Indication: HIV INFECTION
     Dosage: 1500 MG QD PO (047)
     Route: 048
     Dates: start: 20020523, end: 20050507
  4. ABACAVIR [Suspect]
     Indication: HIV INFECTION
     Dosage: 600 MG PO (047)
     Route: 048
     Dates: start: 20040521
  5. ABACAVIR [Suspect]
     Indication: HIV INFECTION
     Dosage: 600 MG PO (047)
     Route: 048
     Dates: start: 20040608
  6. LIPITOR [Concomitant]
  7. ACYCLOVIR [Concomitant]
  8. TIMOLOL MALEATE [Concomitant]
  9. IMODIUM [Concomitant]
  10. METAMUCIL [Concomitant]
  11. NASINEX [Concomitant]

REACTIONS (2)
  - HYPOAESTHESIA [None]
  - MYOCARDIAL INFARCTION [None]
